FAERS Safety Report 18065692 (Version 3)
Quarter: 2020Q4

REPORT INFORMATION
  Report Type: Report from Study
  Country: US (occurrence: US)
  Receive Date: 20200724
  Receipt Date: 20201010
  Transmission Date: 20210113
  Serious: Yes (Other)
  Sender: FDA-Public Use
  Company Number: NVSC2020US207284

PATIENT
  Sex: Female

DRUGS (1)
  1. PIQRAY [Suspect]
     Active Substance: ALPELISIB
     Indication: PRODUCT USED FOR UNKNOWN INDICATION
     Dosage: UNK
     Route: 048

REACTIONS (13)
  - Eye swelling [Unknown]
  - Laboratory test abnormal [Unknown]
  - Onychoclasis [Unknown]
  - Dry skin [Unknown]
  - Hyperglycaemia [Unknown]
  - Nausea [Unknown]
  - Skin haemorrhage [Unknown]
  - Peripheral swelling [Unknown]
  - Pruritus [Unknown]
  - Renal impairment [Unknown]
  - Skin exfoliation [Unknown]
  - Swelling face [Not Recovered/Not Resolved]
  - Rash [Unknown]
